FAERS Safety Report 11877940 (Version 4)
Quarter: 2016Q2

REPORT INFORMATION
  Report Type: Spontaneous
  Country: JP (occurrence: JP)
  Receive Date: 20151230
  Receipt Date: 20160406
  Transmission Date: 20160815
  Serious: Yes (Hospitalization, Other)
  Sender: FDA-Public Use
  Company Number: JP-ROCHE-1686096

PATIENT
  Age: 84 Year
  Sex: Female
  Weight: 49 kg

DRUGS (15)
  1. COPEGUS [Suspect]
     Active Substance: RIBAVIRIN
     Indication: CHRONIC HEPATITIS C
     Dosage: SPLIT FREQUENCY OF ADMINISTRATION, DOSING INTERVAL UNKNOWN
     Route: 048
     Dates: start: 20150910, end: 20151125
  2. NEUROTROPIN (JAPAN) [Concomitant]
     Dosage: DOSAGE IS UNCERTAIN.
     Route: 048
     Dates: start: 20130109
  3. TRESIBA [Concomitant]
     Active Substance: INSULIN DEGLUDEC
     Dosage: DOSAGE IS UNCERTAIN.
     Route: 065
     Dates: start: 20130716
  4. DIAZEPAM. [Concomitant]
     Active Substance: DIAZEPAM
     Dosage: DOSAGE IS UNCERTAIN.
     Route: 065
     Dates: start: 20150325
  5. LIMAPROST ALFADEX [Concomitant]
     Active Substance: LIMAPROST
     Dosage: DOSAGE IS UNCERTAIN.
     Route: 065
     Dates: start: 20130313
  6. SANCOBA [Concomitant]
     Active Substance: CYANOCOBALAMIN
     Dosage: DOSAGE IS UNCERTAIN.
     Route: 048
     Dates: start: 20150625
  7. ALLOPURINOL. [Concomitant]
     Active Substance: ALLOPURINOL
     Dosage: DOSAGE IS UNCERTAIN.
     Route: 065
     Dates: start: 20150924
  8. BONOTEO [Concomitant]
     Active Substance: MINODRONIC ACID
     Dosage: DOSAGE IS UNCERTAIN.
     Route: 065
     Dates: start: 20130206
  9. COPEGUS [Suspect]
     Active Substance: RIBAVIRIN
     Dosage: SPLIT FREQUENCY OF ADMINISTRATION, DOSING INTERVAL UNKNOWN
     Route: 048
     Dates: start: 20151127, end: 20151129
  10. SOVALDI [Suspect]
     Active Substance: SOFOSBUVIR
     Indication: CHRONIC HEPATITIS C
     Dosage: SPLIT FREQUENCY OF ADMINISTRATION, DOSING INTERVAL UNKNOWN
     Route: 048
     Dates: start: 20150910, end: 20151125
  11. SOVALDI [Suspect]
     Active Substance: SOFOSBUVIR
     Dosage: FRACTIONATION DOSE FREQUENCY AND DOSE INTERVAL UNCERTAINTY
     Route: 048
     Dates: start: 20151127, end: 20151129
  12. LANTUS [Concomitant]
     Active Substance: INSULIN GLARGINE
     Dosage: DOSAGE IS UNCERTAIN.
     Route: 065
  13. EDIROL [Concomitant]
     Active Substance: ELDECALCITOL
     Dosage: DOSAGE IS UNCERTAIN.
     Route: 048
     Dates: start: 20131120
  14. DUOTRAV [Concomitant]
     Active Substance: TIMOLOL MALEATE\TRAVOPROST
     Dosage: DOSAGE IS UNCERTAIN.
     Route: 048
     Dates: start: 20130704
  15. PATANOL [Concomitant]
     Active Substance: OLOPATADINE HYDROCHLORIDE
     Dosage: DOSAGE IS UNCERTAIN.
     Route: 048
     Dates: start: 20140220

REACTIONS (9)
  - Parosmia [Recovered/Resolved]
  - Delirium [Recovered/Resolved]
  - Dementia [Recovered/Resolved]
  - Weight decreased [Unknown]
  - Intercostal neuralgia [Recovered/Resolved]
  - Dysgeusia [Recovered/Resolved]
  - Abdominal pain lower [Recovered/Resolved]
  - Back pain [Recovered/Resolved]
  - Abdominal pain upper [Recovered/Resolved]

NARRATIVE: CASE EVENT DATE: 20151102
